FAERS Safety Report 5046578-9 (Version None)
Quarter: 2006Q3

REPORT INFORMATION
  Report Type: 
  Country: None (occurrence: None)
  Receive Date: 20060705
  Receipt Date: 20060705
  Transmission Date: 20061208
  Serious: No
  Sender: FDA-Public Use
  Company Number: None

PATIENT
  Sex: Female

DRUGS (1)
  1. TOP TRESADERM [Suspect]
     Indication: DRUG ADMINISTRATION ERROR
     Dosage: TOP
     Route: 061
     Dates: start: 20060614, end: 20060614

REACTIONS (2)
  - ACCIDENTAL EXPOSURE [None]
  - PARAESTHESIA [None]
